FAERS Safety Report 16162537 (Version 1)
Quarter: 2019Q2

REPORT INFORMATION
  Report Type: Spontaneous
  Country: DE (occurrence: DE)
  Receive Date: 20190405
  Receipt Date: 20190405
  Transmission Date: 20190711
  Serious: Yes (Other)
  Sender: FDA-Public Use
  Company Number: PHHY2019DE074648

PATIENT
  Age: 20 Year
  Weight: 49 kg

DRUGS (4)
  1. MEKINIST [Suspect]
     Active Substance: TRAMETINIB DIMETHYL SULFOXIDE
     Dosage: 0.5 MG, BID
     Route: 065
  2. MEKINIST [Suspect]
     Active Substance: TRAMETINIB DIMETHYL SULFOXIDE
     Dosage: 1 MG, QD
     Route: 065
  3. MEKINIST [Suspect]
     Active Substance: TRAMETINIB DIMETHYL SULFOXIDE
     Indication: EWING^S SARCOMA METASTATIC
     Dosage: 2 MG, UNK
     Route: 065
     Dates: start: 201811
  4. MEKINIST [Suspect]
     Active Substance: TRAMETINIB DIMETHYL SULFOXIDE
     Dosage: 0.5 MG, UNK
     Route: 065

REACTIONS (7)
  - Diarrhoea [Unknown]
  - Rash [Unknown]
  - Acne [Unknown]
  - Fatigue [Unknown]
  - Lung disorder [Unknown]
  - Constipation [Unknown]
  - Product use in unapproved indication [Unknown]
